FAERS Safety Report 7291081-9 (Version None)
Quarter: 2011Q1

REPORT INFORMATION
  Report Type: 
  Country: None (occurrence: None)
  Receive Date: 20110214
  Receipt Date: 20110202
  Transmission Date: 20110831
  Serious: Yes (Hospitalization)
  Sender: FDA-Public Use
  Company Number: IT-TEVA-264378ISR

PATIENT
  Sex: Male

DRUGS (25)
  1. CASPOFUNGIN [Suspect]
     Route: 042
     Dates: start: 20101225, end: 20101225
  2. FLUCONAZOLE [Concomitant]
  3. ALBUMIN (HUMAN) [Concomitant]
     Dosage: UNIT DOSE: 50 G/L
     Route: 042
  4. ACETAMINOPHEN WITH PROPOXYPHENE HCL TAB [Concomitant]
  5. MORPHINE HYDROCHLORIDE [Concomitant]
  6. ENOXAPARIN SODIUM [Concomitant]
  7. ETACRYNIC ACID [Concomitant]
  8. TEICOPLANIN [Suspect]
     Dosage: UNIT DOSE: 200 MG/3ML
     Route: 042
     Dates: start: 20101025, end: 20110104
  9. MEROPENEM [Suspect]
     Route: 042
     Dates: start: 20110104, end: 20110111
  10. LINEZOLID [Suspect]
     Route: 042
     Dates: start: 20110104, end: 20110113
  11. INSULIN HUMAN [Concomitant]
  12. GASTROGRAFIN [Concomitant]
  13. OCTREOTIDE ACETATE [Concomitant]
  14. AMIODARONE HYDROCHLORIDE [Concomitant]
  15. CASPOFUNGIN [Suspect]
     Route: 042
     Dates: start: 20101225, end: 20110112
  16. CIPROFLOXACIN [Suspect]
     Dosage: UNIT DOSE: 200 MG/100 ML
     Route: 042
     Dates: start: 20101227, end: 20110103
  17. PIPERACILLIN SODIUM W/TAZOBACTAM [Suspect]
     Dosage: UNIT DOSE: 4G/0.5G
     Route: 042
     Dates: start: 20101215, end: 20101225
  18. OMEPRAZOLE [Concomitant]
  19. NOREPINEPHRINE BITARTRATE [Concomitant]
  20. PHYTONADIONE [Concomitant]
  21. POTASSIUM CANRENOATE [Concomitant]
  22. FUROSEMIDE [Concomitant]
  23. AMIKACIN [Suspect]
     Route: 042
     Dates: start: 20101220, end: 20101226
  24. CISATRACURIUM [Concomitant]
  25. PIPERACILLIN SODIUM W/TAZOBACTAM [Suspect]
     Dosage: UNIT DOSE: 2G/0.25G
     Route: 042
     Dates: start: 20101226, end: 20101230

REACTIONS (2)
  - ERYTHEMA [None]
  - STEVENS-JOHNSON SYNDROME [None]
